FAERS Safety Report 7912751-2 (Version None)
Quarter: 2011Q4

REPORT INFORMATION
  Report Type: 
  Country: None (occurrence: None)
  Receive Date: 20111114
  Receipt Date: 20111101
  Transmission Date: 20120403
  Serious: Yes (Other)
  Sender: FDA-Public Use
  Company Number: US-MYLANLABS-2011S1022759

PATIENT
  Age: 24 Year
  Sex: Female

DRUGS (3)
  1. CETIRIZINE HCL [Suspect]
     Dosage: 10 MG/DAY
     Route: 065
  2. MEDROXYPROGESTERONE [Concomitant]
     Route: 065
  3. VALACICLOVIR [Concomitant]
     Indication: HERPES SIMPLEX
     Dosage: DAILY
     Route: 065

REACTIONS (2)
  - DYSTONIA [None]
  - DYSARTHRIA [None]
